FAERS Safety Report 10386970 (Version 1)
Quarter: 2014Q3

REPORT INFORMATION
  Report Type: Spontaneous
  Country: US (occurrence: None)
  Receive Date: 20140814
  Receipt Date: 20140814
  Transmission Date: 20150326
  Serious: No
  Sender: FDA-Public Use
  Company Number: None

PATIENT
  Age: 22 Year
  Sex: Female
  Weight: 71.67 kg

DRUGS (1)
  1. ESCITALOPRAM [Suspect]
     Active Substance: ESCITALOPRAM OXALATE
     Indication: DEPRESSION
     Dosage: 1 PILL DAILY ONCE DAILY TAKEN BY MOUTH
     Route: 048
     Dates: start: 20140812, end: 20140813

REACTIONS (7)
  - Insomnia [None]
  - Paraesthesia [None]
  - Somnolence [None]
  - Vomiting [None]
  - Restlessness [None]
  - Psychomotor hyperactivity [None]
  - Nausea [None]

NARRATIVE: CASE EVENT DATE: 20140813
